FAERS Safety Report 10135673 (Version 1)
Quarter: 2014Q2

REPORT INFORMATION
  Report Type: Spontaneous
  Country: US (occurrence: US)
  Receive Date: 20140428
  Receipt Date: 20140428
  Transmission Date: 20141212
  Serious: No
  Sender: FDA-Public Use
  Company Number: US-009507513-1404USA006329

PATIENT
  Sex: Male

DRUGS (2)
  1. CLARITIN CHEWABLE TABLETS [Suspect]
     Indication: HYPERSENSITIVITY
     Dosage: 8 AM
     Route: 048
  2. CLARITIN CHEWABLE TABLETS [Suspect]
     Dosage: 3 PM
     Route: 048

REACTIONS (3)
  - Agitation [Unknown]
  - Irritability [Unknown]
  - Somnolence [Unknown]
